FAERS Safety Report 6831892-4 (Version None)
Quarter: 2010Q3

REPORT INFORMATION
  Report Type: 
  Country: None (occurrence: None)
  Receive Date: 20100707
  Receipt Date: 20100625
  Transmission Date: 20110219
  Serious: Yes (Hospitalization)
  Sender: FDA-Public Use
  Company Number: 013727

PATIENT
  Sex: Male

DRUGS (2)
  1. VIMPAT [Suspect]
     Indication: EPILEPSY
     Dosage: (50 MG BID ORAL), (100 MG BID ORAL)
     Route: 048
     Dates: start: 20100301, end: 20100301
  2. KEPPRA [Suspect]
     Indication: EPILEPSY
     Dosage: (1500 MG BID ORAL)
     Route: 048
     Dates: start: 20060101

REACTIONS (3)
  - CONDITION AGGRAVATED [None]
  - EPILEPSY [None]
  - NO THERAPEUTIC RESPONSE [None]
